FAERS Safety Report 12384954 (Version 4)
Quarter: 2016Q3

REPORT INFORMATION
  Report Type: Report from Study
  Country: JP (occurrence: JP)
  Receive Date: 20160519
  Receipt Date: 20160927
  Transmission Date: 20161109
  Serious: Yes (Hospitalization, Other)
  Sender: FDA-Public Use
  Company Number: JP-ROCHE-1756779

PATIENT
  Age: 74 Year
  Sex: Female

DRUGS (16)
  1. RANIBIZUMAB [Suspect]
     Active Substance: RANIBIZUMAB
     Indication: RETINAL VEIN OCCLUSION
     Route: 050
     Dates: start: 20141218
  2. RANIBIZUMAB [Suspect]
     Active Substance: RANIBIZUMAB
     Route: 050
     Dates: start: 20150402
  3. CRAVIT [Concomitant]
     Active Substance: LEVOFLOXACIN
     Indication: ANTIBIOTIC PROPHYLAXIS
     Dosage: BEFORE AND AFTER LUCENTIS ADMINISTRATION
     Route: 047
     Dates: start: 20141218
  4. RANIBIZUMAB [Suspect]
     Active Substance: RANIBIZUMAB
     Route: 050
     Dates: start: 20150604
  5. CRAVIT [Concomitant]
     Active Substance: LEVOFLOXACIN
     Dosage: BEFORE AND AFTER LUCENTIS ADMINISTRATION
     Route: 047
     Dates: start: 20150305
  6. CRAVIT [Concomitant]
     Active Substance: LEVOFLOXACIN
     Dosage: BEFORE AND AFTER LUCENTIS ADMINISTRATION
     Route: 047
     Dates: start: 20150402
  7. RANIBIZUMAB [Suspect]
     Active Substance: RANIBIZUMAB
     Route: 050
     Dates: start: 20150702
  8. CRAVIT [Concomitant]
     Active Substance: LEVOFLOXACIN
     Dosage: BEFORE AND AFTER LUCENTIS ADMINISTRATION
     Route: 047
     Dates: start: 20150702
  9. RANIBIZUMAB [Suspect]
     Active Substance: RANIBIZUMAB
     Route: 050
     Dates: start: 20150507
  10. RANIBIZUMAB [Suspect]
     Active Substance: RANIBIZUMAB
     Indication: MACULAR OEDEMA
     Route: 050
     Dates: start: 20150305
  11. RANIBIZUMAB [Suspect]
     Active Substance: RANIBIZUMAB
     Route: 050
     Dates: start: 20150806
  12. RANIBIZUMAB [Suspect]
     Active Substance: RANIBIZUMAB
     Route: 050
     Dates: start: 20150903, end: 20150903
  13. CRAVIT [Concomitant]
     Active Substance: LEVOFLOXACIN
     Dosage: BEFORE AND AFTER LUCENTIS ADMINISTRATION
     Route: 047
     Dates: start: 20150507
  14. CRAVIT [Concomitant]
     Active Substance: LEVOFLOXACIN
     Dosage: BEFORE AND AFTER LUCENTIS ADMINISTRATION
     Route: 047
     Dates: start: 20150806
  15. CRAVIT [Concomitant]
     Active Substance: LEVOFLOXACIN
     Dosage: BEFORE AND AFTER LUCENTIS ADMINISTRATION
     Route: 047
     Dates: start: 20150604
  16. CRAVIT [Concomitant]
     Active Substance: LEVOFLOXACIN
     Dosage: BEFORE AND AFTER LUCENTIS ADMINISTRATION
     Route: 047
     Dates: start: 20150903

REACTIONS (2)
  - Visual acuity reduced [Unknown]
  - Cerebral infarction [Unknown]

NARRATIVE: CASE EVENT DATE: 20150903
